FAERS Safety Report 9326196 (Version 1)
Quarter: 2013Q2

REPORT INFORMATION
  Report Type: Spontaneous
  Country: JP (occurrence: JP)
  Receive Date: 20130604
  Receipt Date: 20130604
  Transmission Date: 20140414
  Serious: Yes (Hospitalization)
  Sender: FDA-Public Use
  Company Number: JP-B.I. PHARMACEUTICALS,INC./RIDGEFIELD-2013-BI-15569NB

PATIENT
  Sex: Female

DRUGS (1)
  1. PRAZAXA [Suspect]
     Route: 065

REACTIONS (3)
  - Fracture [Unknown]
  - Fall [Unknown]
  - Abdominal discomfort [Unknown]
